FAERS Safety Report 18712615 (Version 2)
Quarter: 2021Q1

REPORT INFORMATION
  Report Type: Spontaneous
  Country: JP (occurrence: JP)
  Receive Date: 20210107
  Receipt Date: 20210121
  Transmission Date: 20210419
  Serious: Yes (Other)
  Sender: FDA-Public Use
  Company Number: JP-TEVA-2020-JP-1865028

PATIENT
  Age: 66 Year
  Sex: Male

DRUGS (5)
  1. L?LV [Suspect]
     Active Substance: LEUCOVORIN
     Indication: COLON CANCER
     Route: 065
  2. L?OHP [Suspect]
     Active Substance: OXALIPLATIN
     Indication: COLON CANCER
     Route: 065
  3. CPT?11 [Suspect]
     Active Substance: IRINOTECAN HYDROCHLORIDE
     Indication: COLON CANCER
     Route: 065
  4. BEVACIZUMAB. [Suspect]
     Active Substance: BEVACIZUMAB
     Indication: COLON CANCER
     Dosage: 5 MG/KG EVERY 2 WEEKS COURSE (STARTED FROM THIRD COURSE)
     Route: 065
  5. 5?FU [Suspect]
     Active Substance: FLUOROURACIL
     Indication: COLON CANCER
     Dosage: CONTINUOUS FOR 46 HOURS
     Route: 065

REACTIONS (3)
  - Neutropenia [Unknown]
  - Decreased appetite [Recovered/Resolved]
  - Stomatitis [Recovered/Resolved]
